FAERS Safety Report 10610774 (Version 1)
Quarter: 2014Q4

REPORT INFORMATION
  Report Type: Spontaneous
  Country: US (occurrence: US)
  Receive Date: 20141126
  Receipt Date: 20141126
  Transmission Date: 20150529
  Serious: No
  Sender: FDA-Public Use
  Company Number: US-MALLINCKRODT-T201401060

PATIENT
  Age: 41 Year
  Sex: Female

DRUGS (1)
  1. GABLOFEN [Suspect]
     Active Substance: BACLOFEN
     Indication: MUSCLE SPASTICITY
     Dosage: 88.14 MCG/DAY
     Route: 037

REACTIONS (6)
  - Underdose [Unknown]
  - Implant site extravasation [Recovered/Resolved]
  - Device damage [Recovered/Resolved]
  - Pruritus [Unknown]
  - Muscle spasticity [Unknown]
  - Muscle spasms [Unknown]

NARRATIVE: CASE EVENT DATE: 20140105
